FAERS Safety Report 22085193 (Version 1)
Quarter: 2023Q1

REPORT INFORMATION
  Report Type: Spontaneous
  Country: US (occurrence: None)
  Receive Date: 20230309
  Receipt Date: 20230309
  Transmission Date: 20230418
  Serious: Yes (Hospitalization)
  Sender: FDA-Public Use
  Company Number: None

PATIENT
  Age: 76 Year
  Sex: Female
  Weight: 54.88 kg

DRUGS (14)
  1. PIQRAY [Suspect]
     Active Substance: ALPELISIB
     Indication: Breast cancer female
     Dosage: FREQUENCY : DAILY;?
     Route: 048
     Dates: start: 20210106
  2. AMLODIPINE [Concomitant]
  3. CARBEDILOL [Concomitant]
  4. VITAMIN D3 [Concomitant]
     Active Substance: CHOLECALCIFEROL
  5. FERROUS SULFATE [Concomitant]
  6. HUMALOG [Concomitant]
  7. LANTUS SOLOSTAR [Concomitant]
  8. LETROZOLE [Concomitant]
  9. LOKELMA [Concomitant]
  10. PROCRIT [Concomitant]
  11. REPAGLIINIDE [Concomitant]
  12. SODIUM BICARBONATE [Concomitant]
  13. VITAMIN B12 [Concomitant]
  14. XGEVA [Concomitant]

REACTIONS (1)
  - Hospitalisation [None]
